FAERS Safety Report 4965947-6 (Version None)
Quarter: 2006Q2

REPORT INFORMATION
  Report Type: 
  Country: None (occurrence: None)
  Receive Date: 20060403
  Receipt Date: 20060322
  Transmission Date: 20061013
  Serious: Yes (Other)
  Sender: FDA-Public Use
  Company Number: 2006040015

PATIENT
  Age: 45 Year
  Sex: Female

DRUGS (1)
  1. LYRICA [Suspect]
     Indication: HERPES ZOSTER
     Dosage: ORAL
     Route: 048

REACTIONS (1)
  - BRADYCARDIA [None]
